FAERS Safety Report 19256953 (Version 2)
Quarter: 2021Q2

REPORT INFORMATION
  Report Type: Spontaneous
  Country: US (occurrence: US)
  Receive Date: 20210513
  Receipt Date: 20210519
  Transmission Date: 20210717
  Serious: No
  Sender: FDA-Public Use
  Company Number: US-GW PHARMA-202105USGW02330

PATIENT

DRUGS (4)
  1. EPIDIOLEX [Suspect]
     Active Substance: CANNABIDIOL
     Dosage: ANOTHER BATCH NUMBER
     Route: 048
  2. EPIDIOLEX [Suspect]
     Active Substance: CANNABIDIOL
     Dosage: ANOTHER BATCH NUMBER
     Route: 048
  3. EPIDIOLEX [Suspect]
     Active Substance: CANNABIDIOL
     Indication: EPILEPSY
     Dosage: 260 MILLIGRAM, BID
     Route: 048
     Dates: start: 20201110
  4. EPIDIOLEX [Suspect]
     Active Substance: CANNABIDIOL
     Dosage: DECREASING DOSE WITH GOAL TO STOP THERAPY
     Route: 048

REACTIONS (1)
  - Seizure [Recovering/Resolving]
